FAERS Safety Report 11240963 (Version 1)
Quarter: 2015Q3

REPORT INFORMATION
  Report Type: Spontaneous
  Country: GB (occurrence: GB)
  Receive Date: 20150706
  Receipt Date: 20150706
  Transmission Date: 20151125
  Serious: Yes (Other)
  Sender: FDA-Public Use
  Company Number: GB-PFIZER INC-2015217511

PATIENT
  Age: 35 Year
  Sex: Female

DRUGS (1)
  1. CHAMPIX [Suspect]
     Active Substance: VARENICLINE TARTRATE
     Dosage: 0.5 MG AND 1 MG UNIT DOSE
     Route: 048
     Dates: start: 20150528, end: 20150611

REACTIONS (4)
  - Depression [Recovering/Resolving]
  - Depressed mood [Recovering/Resolving]
  - Tearfulness [Unknown]
  - Anxiety [Unknown]
